FAERS Safety Report 19067885 (Version 1)
Quarter: 2021Q1

REPORT INFORMATION
  Report Type: Spontaneous
  Country: US (occurrence: US)
  Receive Date: 20210326
  Receipt Date: 20210326
  Transmission Date: 20210420
  Serious: No
  Sender: FDA-Public Use
  Company Number: None

PATIENT
  Age: 30 Year
  Sex: Female
  Weight: 177.75 kg

DRUGS (7)
  1. DOXEPIN [Concomitant]
     Active Substance: DOXEPIN
  2. LAMICTAL [Concomitant]
     Active Substance: LAMOTRIGINE
  3. ASPIRIN. [Concomitant]
     Active Substance: ASPIRIN
  4. CHANTIX [Suspect]
     Active Substance: VARENICLINE TARTRATE
     Indication: SMOKING CESSATION THERAPY
     Dosage: ?          QUANTITY:1 TABLET(S);?
     Route: 048
     Dates: start: 20210308, end: 20210326
  5. INVEGA [Concomitant]
     Active Substance: PALIPERIDONE
  6. NEBULIZER [Concomitant]
     Active Substance: DEVICE
  7. INHALER [Concomitant]
     Active Substance: UNSPECIFIED INGREDIENT

REACTIONS (3)
  - Loss of consciousness [None]
  - Skin laceration [None]
  - Intentional self-injury [None]

NARRATIVE: CASE EVENT DATE: 20210322
